FAERS Safety Report 25561097 (Version 1)
Quarter: 2025Q3

REPORT INFORMATION
  Report Type: Spontaneous
  Country: EU (occurrence: EU)
  Receive Date: 20250715
  Receipt Date: 20250715
  Transmission Date: 20251021
  Serious: Yes (Other)
  Sender: CELLTRION
  Company Number: EU-AMGEN-ITASP2025045434

PATIENT

DRUGS (5)
  1. ADALIMUMAB [Suspect]
     Active Substance: ADALIMUMAB
     Indication: Spondylitis
     Route: 065
  2. SULFASALAZINE [Concomitant]
     Active Substance: SULFASALAZINE
     Indication: Spondylitis
  3. METHOTREXATE [Concomitant]
     Active Substance: METHOTREXATE
     Indication: Spondylitis
  4. CERTOLIZUMAB PEGOL [Concomitant]
     Active Substance: CERTOLIZUMAB PEGOL
     Indication: Spondylitis
  5. GOLIMUMAB [Concomitant]
     Active Substance: GOLIMUMAB
     Indication: Spondylitis

REACTIONS (4)
  - Noninfective chorioretinitis [Unknown]
  - Eye infection toxoplasmal [Unknown]
  - Granuloma [Unknown]
  - Drug ineffective [Unknown]
